FAERS Safety Report 11096007 (Version 1)
Quarter: 2015Q2

REPORT INFORMATION
  Report Type: Spontaneous
  Country: LB (occurrence: None)
  Receive Date: 20150505
  Receipt Date: 20150505
  Transmission Date: 20150821
  Serious: Yes (Other)
  Sender: FDA-Public Use
  Company Number: 2015HINLIT0396

PATIENT
  Age: 22 Month
  Sex: Female

DRUGS (2)
  1. VALPROATE [Concomitant]
     Active Substance: VALPROATE SODIUM
  2. LEVETIRACTAM [Suspect]
     Active Substance: LEVETIRACETAM
     Indication: SEIZURE

REACTIONS (2)
  - Condition aggravated [None]
  - Atonic seizures [None]
